FAERS Safety Report 5670734-X (Version None)
Quarter: 2008Q1

REPORT INFORMATION
  Report Type: 
  Country: None (occurrence: None)
  Receive Date: 20080318
  Receipt Date: 20080310
  Transmission Date: 20080703
  Serious: Yes (Other)
  Sender: FDA-Public Use
  Company Number: PHFR2008GB01077

PATIENT

DRUGS (4)
  1. TEGRETOL [Suspect]
     Dosage: 50 MG, TID
  2. TEGRETOL [Suspect]
     Dosage: 50 ML (1 G)
     Route: 048
  3. PHENYTOIN [Concomitant]
     Route: 065
  4. PHENOBARBITAL TAB [Concomitant]
     Route: 065

REACTIONS (2)
  - ACCIDENTAL OVERDOSE [None]
  - MEDICATION ERROR [None]
